FAERS Safety Report 9661085 (Version 2)
Quarter: 2013Q4

REPORT INFORMATION
  Report Type: Spontaneous
  Country: None (occurrence: None)
  Receive Date: 20131030
  Receipt Date: 20131129
  Transmission Date: 20140711
  Serious: Yes (Hospitalization)
  Sender: FDA-Public Use
  Company Number: 2013100112

PATIENT
  Age: 62 Year
  Sex: Male
  Weight: 88 kg

DRUGS (2)
  1. MUSE [Suspect]
     Indication: ERECTILE DYSFUNCTION
     Dosage: 1000MCG (1000MCG, 1 IN 1TOTAL) URETHRAL
     Dates: start: 20130920, end: 20130920
  2. PROSTAGLANDINS (PROSTAGLANDINS) [Concomitant]

REACTIONS (2)
  - Drug ineffective [None]
  - Spinal pain [None]
